FAERS Safety Report 18114181 (Version 1)
Quarter: 2020Q3

REPORT INFORMATION
  Report Type: Spontaneous
  Country: US (occurrence: US)
  Receive Date: 20200805
  Receipt Date: 20200805
  Transmission Date: 20201103
  Serious: No
  Sender: FDA-Public Use
  Company Number: None

PATIENT
  Age: 58 Year
  Sex: Female

DRUGS (4)
  1. MYCOPHENOLIC ACID. [Suspect]
     Active Substance: MYCOPHENOLIC ACID
     Indication: RENAL TRANSPLANT
     Route: 048
     Dates: start: 20200417
  2. TACROLIMUS 1 MG [Concomitant]
     Active Substance: TACROLIMUS
  3. PREDNISONE 5 MG [Concomitant]
     Active Substance: PREDNISONE
  4. MYCOPHENOLATE MOFETIL. [Suspect]
     Active Substance: MYCOPHENOLATE MOFETIL
     Indication: RENAL TRANSPLANT
     Route: 048
     Dates: start: 20190201, end: 20200805

REACTIONS (1)
  - Treatment noncompliance [None]

NARRATIVE: CASE EVENT DATE: 20200805
